FAERS Safety Report 12161210 (Version 1)
Quarter: 2016Q1

REPORT INFORMATION
  Report Type: Spontaneous
  Country: FR (occurrence: FR)
  Receive Date: 20160308
  Receipt Date: 20160308
  Transmission Date: 20160526
  Serious: Yes (Life-Threatening, Hospitalization)
  Sender: FDA-Public Use
  Company Number: FR-ASTRAZENECA-2016SE23373

PATIENT
  Age: 23303 Day
  Sex: Female

DRUGS (10)
  1. BRILIQUE [Interacting]
     Active Substance: TICAGRELOR
     Indication: MYOCARDIAL ISCHAEMIA
     Route: 048
     Dates: start: 201602, end: 20160211
  2. BRICANYL [Concomitant]
     Active Substance: TERBUTALINE SULFATE
  3. KARDEGIC [Interacting]
     Active Substance: ASPIRIN LYSINE
     Indication: MYOCARDIAL ISCHAEMIA
     Route: 065
  4. INEXIUM [Concomitant]
     Active Substance: ESOMEPRAZOLE
  5. LOVENOX [Interacting]
     Active Substance: ENOXAPARIN SODIUM
     Indication: THROMBOSIS PROPHYLAXIS
     Route: 058
     Dates: start: 201602, end: 20160210
  6. DIFFU-K [Concomitant]
     Active Substance: POTASSIUM CHLORIDE
  7. NICOPATCH [Concomitant]
     Active Substance: NICOTINE
  8. TAHOR [Concomitant]
     Active Substance: ATORVASTATIN CALCIUM
  9. BRILIQUE [Suspect]
     Active Substance: TICAGRELOR
     Indication: MYOCARDIAL ISCHAEMIA
     Route: 048
     Dates: start: 201602, end: 20160211
  10. ATROVENT [Concomitant]
     Active Substance: IPRATROPIUM BROMIDE

REACTIONS (8)
  - Ventricular fibrillation [Unknown]
  - Gastric ulcer [Unknown]
  - Cardio-respiratory arrest [Unknown]
  - Anaemia [Recovered/Resolved]
  - Melaena [Recovered/Resolved]
  - Coronary artery occlusion [Unknown]
  - Drug interaction [Unknown]
  - Duodenal ulcer [Unknown]

NARRATIVE: CASE EVENT DATE: 20160211
